FAERS Safety Report 5305945-6 (Version None)
Quarter: 2007Q1

REPORT INFORMATION
  Report Type: 
  Country: None (occurrence: None)
  Receive Date: 20070201
  Receipt Date: 20061204
  Transmission Date: 20070707
  Serious: No
  Sender: FDA-Public Use
  Company Number: 2006PV026305

PATIENT
  Age: 58 Year
  Sex: Female
  Weight: 76.2043 kg

DRUGS (1)
  1. BYETTA [Suspect]
     Indication: DIABETES MELLITUS NON-INSULIN-DEPENDENT
     Dosage: 45 MCG;BID;SC
     Route: 058
     Dates: start: 20061101

REACTIONS (5)
  - ABDOMINAL PAIN LOWER [None]
  - CONSTIPATION [None]
  - DIVERTICULITIS [None]
  - FATIGUE [None]
  - PYREXIA [None]
